FAERS Safety Report 9260502 (Version 1)
Quarter: 2013Q2

REPORT INFORMATION
  Report Type: Spontaneous
  Country: JP (occurrence: JP)
  Receive Date: 20130429
  Receipt Date: 20130429
  Transmission Date: 20140414
  Serious: Yes (Other)
  Sender: FDA-Public Use
  Company Number: JP-ASTELLAS-2013JP005433

PATIENT
  Age: 46 Year
  Sex: Male

DRUGS (16)
  1. PROGRAF [Suspect]
     Indication: BONE MARROW TRANSPLANT
     Route: 065
  2. PROGRAF [Suspect]
     Indication: BONE MARROW TRANSPLANT
     Dosage: 0.8 MG, UNKNOWN/D
     Route: 048
  3. SEROQUEL [Concomitant]
     Route: 048
  4. TAKEPRON [Concomitant]
     Route: 065
  5. ITRIZOLE [Concomitant]
     Route: 048
  6. CIPROXAN                           /00697202/ [Concomitant]
     Route: 048
  7. ZOVIRAX                            /00587301/ [Concomitant]
     Route: 048
  8. URSO                               /00465701/ [Concomitant]
     Route: 048
  9. MUCOSTA [Concomitant]
     Route: 065
  10. MIYA BM [Concomitant]
     Route: 048
  11. PROTECADIN [Concomitant]
     Route: 048
  12. EPADEL-S [Concomitant]
     Route: 048
  13. MALFA [Concomitant]
     Route: 048
  14. ALLOID G [Concomitant]
     Route: 048
  15. NAUZELIN [Concomitant]
     Route: 048
  16. LENDORMIN [Concomitant]
     Route: 048

REACTIONS (3)
  - Drug ineffective [Unknown]
  - Graft versus host disease [Unknown]
  - Nausea [Recovered/Resolved]
